FAERS Safety Report 9315859 (Version 2)
Quarter: 2014Q4

REPORT INFORMATION
  Report Type: Spontaneous
  Country: US (occurrence: US)
  Receive Date: 20130530
  Receipt Date: 20141030
  Transmission Date: 20150529
  Serious: Yes (Other)
  Sender: FDA-Public Use
  Company Number: US-009507513-1305USA002229

PATIENT
  Age: 75 Year
  Sex: Female

DRUGS (4)
  1. CRESTOR [Suspect]
     Active Substance: ROSUVASTATIN CALCIUM
     Dosage: UNK
  2. MEVACOR [Suspect]
     Active Substance: LOVASTATIN
     Indication: BLOOD CHOLESTEROL INCREASED
     Dosage: UNK
     Route: 048
     Dates: start: 2012, end: 2012
  3. MEVACOR [Suspect]
     Active Substance: LOVASTATIN
     Dosage: UNK
     Route: 048
  4. ZOCOR [Suspect]
     Active Substance: SIMVASTATIN
     Dosage: UNK
     Route: 048

REACTIONS (6)
  - Gastric disorder [Recovered/Resolved]
  - Headache [Recovered/Resolved]
  - Malaise [Unknown]
  - Expired product administered [Unknown]
  - Arthralgia [Recovered/Resolved]
  - Cardiac operation [Unknown]

NARRATIVE: CASE EVENT DATE: 2012
